FAERS Safety Report 9391308 (Version 2)
Quarter: 2013Q3

REPORT INFORMATION
  Report Type: Spontaneous
  Country: GR (occurrence: GR)
  Receive Date: 20130709
  Receipt Date: 20130812
  Transmission Date: 20140515
  Serious: Yes (Other)
  Sender: FDA-Public Use
  Company Number: GR-PFIZER INC-2013200787

PATIENT
  Sex: Male

DRUGS (2)
  1. LYRICA [Suspect]
     Indication: STRESS
     Dosage: 150 MG, 1X/DAY
     Route: 048
     Dates: start: 20130706, end: 20130706
  2. XANAX [Suspect]
     Indication: STRESS
     Dosage: 0.5 MG, 1X/DAY
     Route: 048
     Dates: start: 20130706, end: 20130706

REACTIONS (3)
  - Anaphylactic shock [Recovered/Resolved]
  - Pruritus [Recovered/Resolved]
  - Insomnia [Recovered/Resolved]
